FAERS Safety Report 18348499 (Version 1)
Quarter: 2020Q4

REPORT INFORMATION
  Report Type: Spontaneous
  Country: US (occurrence: US)
  Receive Date: 20201005
  Receipt Date: 20201005
  Transmission Date: 20210114
  Serious: Yes (Disabling)
  Sender: FDA-Public Use
  Company Number: None

PATIENT
  Age: 32 Year
  Sex: Female
  Weight: 86.18 kg

DRUGS (3)
  1. KLONOPIN [Concomitant]
     Active Substance: CLONAZEPAM
  2. CELEXA [Concomitant]
     Active Substance: CITALOPRAM HYDROBROMIDE
  3. MIRENA [Suspect]
     Active Substance: LEVONORGESTREL
     Dates: start: 20150820, end: 20191002

REACTIONS (13)
  - Anxiety [None]
  - Headache [None]
  - Hormone level abnormal [None]
  - Depression [None]
  - Panic attack [None]
  - Migraine with aura [None]
  - Nausea [None]
  - Back pain [None]
  - Menstrual disorder [None]
  - Hair growth abnormal [None]
  - Infertility [None]
  - Visual impairment [None]
  - Muscle spasms [None]

NARRATIVE: CASE EVENT DATE: 20191016
